FAERS Safety Report 8419183-1 (Version None)
Quarter: 2012Q2

REPORT INFORMATION
  Report Type: 
  Country: None (occurrence: None)
  Receive Date: 20120607
  Receipt Date: 20120529
  Transmission Date: 20120825
  Serious: Yes (Hospitalization)
  Sender: FDA-Public Use
  Company Number: DE-ASTRAZENECA-2012SE34587

PATIENT

DRUGS (2)
  1. ASPIRIN [Suspect]
  2. BRILINTA [Suspect]
     Route: 048

REACTIONS (1)
  - THROMBOSIS IN DEVICE [None]
